FAERS Safety Report 15822950 (Version 1)
Quarter: 2018Q4

REPORT INFORMATION
  Report Type: Spontaneous
  Country: US (occurrence: US)
  Receive Date: 20181217
  Receipt Date: 20181217
  Transmission Date: 20190205
  Serious: No
  Sender: FDA-Public Use
  Company Number: None

PATIENT
  Age: 57 Year
  Sex: Female

DRUGS (1)
  1. HYQVIA [Suspect]
     Active Substance: HUMAN IMMUNOGLOBULIN G\HYALURONIDASE RECOMBINANT HUMAN
     Indication: SYSTEMIC LUPUS ERYTHEMATOSUS
     Dosage: ?          OTHER STRENGTH:10GM/100ML;OTHER FREQUENCY:TAPER;?
     Route: 058
     Dates: start: 20181130

REACTIONS (5)
  - Blood pressure increased [None]
  - Dyspnoea [None]
  - Peripheral swelling [None]
  - Swelling [None]
  - Joint swelling [None]

NARRATIVE: CASE EVENT DATE: 20181207
